FAERS Safety Report 19215534 (Version 1)
Quarter: 2021Q2

REPORT INFORMATION
  Report Type: Spontaneous
  Country: US (occurrence: US)
  Receive Date: 20210505
  Receipt Date: 20210505
  Transmission Date: 20210717
  Serious: Yes (Other)
  Sender: FDA-Public Use
  Company Number: US-SUN PHARMACEUTICAL INDUSTRIES LTD-2021R1-294459

PATIENT
  Age: 7 Year
  Sex: Female

DRUGS (6)
  1. FLUDARABINE [Suspect]
     Active Substance: FLUDARABINE PHOSPHATE
     Route: 065
  2. BUSULFAN. [Suspect]
     Active Substance: BUSULFAN
     Route: 065
  3. CYCLOSPORINE. [Suspect]
     Active Substance: CYCLOSPORINE
     Route: 065
  4. METHOTREXATE. [Suspect]
     Active Substance: METHOTREXATE
     Indication: GRAFT VERSUS HOST DISEASE
     Route: 065
  5. RABBIT ATG [Suspect]
     Active Substance: LAPINE T-LYMPHOCYTE IMMUNE GLOBULIN
  6. CYCLOPHOSPHAMIDE. [Suspect]
     Active Substance: CYCLOPHOSPHAMIDE

REACTIONS (5)
  - Posterior reversible encephalopathy syndrome [Unknown]
  - Pericardial effusion [Unknown]
  - Acute kidney injury [Unknown]
  - Acute graft versus host disease [Unknown]
  - Gastrointestinal haemorrhage [Unknown]
